FAERS Safety Report 6719843-4 (Version None)
Quarter: 2010Q2

REPORT INFORMATION
  Report Type: 
  Country: None (occurrence: None)
  Receive Date: 20100511
  Receipt Date: 20100429
  Transmission Date: 20101027
  Serious: Yes (Other)
  Sender: FDA-Public Use
  Company Number: PHHY2010DE12435

PATIENT
  Sex: Female

DRUGS (1)
  1. EXTAVIA [Suspect]
     Indication: MULTIPLE SCLEROSIS
     Dosage: UNK,UNK
     Route: 058
     Dates: start: 20091221, end: 20100415

REACTIONS (7)
  - ABDOMINAL PAIN [None]
  - ATAXIA [None]
  - BALANCE DISORDER [None]
  - FATIGUE [None]
  - HYPOKINESIA [None]
  - MUSCLE SPASTICITY [None]
  - UHTHOFF'S PHENOMENON [None]
